FAERS Safety Report 7608395-2 (Version None)
Quarter: 2011Q3

REPORT INFORMATION
  Report Type: 
  Country: None (occurrence: None)
  Receive Date: 20110714
  Receipt Date: 20110707
  Transmission Date: 20111222
  Serious: Yes (Other)
  Sender: FDA-Public Use
  Company Number: CN-GENZYME-THYM-1002589

PATIENT
  Age: 17 Year
  Sex: Male

DRUGS (24)
  1. GRANULOCYTE COLONY STIMULATING FACTOR [Concomitant]
     Dosage: 5 MCG/KG, QD
     Route: 065
  2. METHOTREXATE [Concomitant]
     Indication: PROPHYLAXIS AGAINST GRAFT VERSUS HOST DISEASE
     Dosage: 15 MG/M2, ONCE
     Route: 042
  3. SODIUM BICARBONATE [Concomitant]
     Indication: PH URINE
     Route: 065
  4. MYCOPHENOLATE MEFETIL [Concomitant]
     Indication: PROPHYLAXIS AGAINST GRAFT VERSUS HOST DISEASE
     Dosage: 0.5 G, BID
     Route: 048
  5. ACYCLOVIR [Concomitant]
     Indication: INFECTION PROPHYLAXIS
     Dosage: UNK
     Route: 042
  6. BUSULFAN [Concomitant]
     Indication: BONE MARROW CONDITIONING REGIMEN
  7. SEMUSTINE CAP [Concomitant]
     Indication: BONE MARROW CONDITIONING REGIMEN
  8. CYTARABINE [Concomitant]
     Indication: BONE MARROW CONDITIONING REGIMEN
     Dosage: UNK
     Route: 065
  9. CYCLOSPORINE [Concomitant]
     Route: 048
  10. METHOTREXATE [Concomitant]
     Dosage: 30 MG/M2, UNK
     Route: 042
  11. MESNA [Concomitant]
     Indication: PROPHYLAXIS
     Dosage: UNK
     Route: 065
  12. NEUMEGA [Concomitant]
     Indication: PROPHYLAXIS AGAINST GRAFT VERSUS HOST DISEASE
     Dosage: 1.5 MG, QD
     Route: 058
  13. HEPARIN [Concomitant]
     Indication: PROPHYLAXIS
     Dosage: 2500 U, QD
     Route: 065
  14. SALVIA MILTIORRHIZA [Concomitant]
     Indication: PROPHYLAXIS
     Dosage: 250 ML, QD
     Route: 051
  15. THYMOGLOBULIN [Suspect]
     Indication: BONE MARROW CONDITIONING REGIMEN
     Dosage: 2.5 MG/KG, QD
     Route: 042
  16. CYCLOPHOSPHAMIDE [Concomitant]
     Indication: BONE MARROW CONDITIONING REGIMEN
     Dosage: 50 MG/KG, QD
     Route: 042
  17. GANCICLOVIR [Concomitant]
     Indication: PROPHYLAXIS
     Dosage: UNK
     Route: 042
  18. GRANULOCYTE COLONY STIMULATING FACTOR [Concomitant]
     Indication: HAEMATOPOIETIC STEM CELL MOBILISATION
     Dosage: UNK
     Route: 058
  19. CYCLOSPORINE [Concomitant]
     Indication: PROPHYLAXIS AGAINST GRAFT VERSUS HOST DISEASE
     Route: 042
  20. AMINO ACIDS NOS [Concomitant]
     Indication: PROPHYLAXIS
     Route: 065
  21. FAT EMULSIONS [Concomitant]
     Indication: PROPHYLAXIS
     Route: 065
  22. IMMUNE GLOBULIN NOS [Concomitant]
     Indication: PROPHYLAXIS
     Dosage: UNK
     Route: 042
  23. CILASTATIN W [Concomitant]
     Indication: PROPHYLAXIS
     Dosage: UNK
     Route: 065
  24. THYMOGLOBULIN [Suspect]
     Indication: PROPHYLAXIS AGAINST GRAFT VERSUS HOST DISEASE

REACTIONS (3)
  - CHRONIC GRAFT VERSUS HOST DISEASE [None]
  - ACUTE GRAFT VERSUS HOST DISEASE [None]
  - CYSTITIS HAEMORRHAGIC [None]
